FAERS Safety Report 8824784 (Version 4)
Quarter: 2012Q4

REPORT INFORMATION
  Report Type: 
  Country: DE (occurrence: DE)
  Receive Date: 20121004
  Receipt Date: 20121120
  Transmission Date: 20130627
  Serious: Yes (Hospitalization, Other)
  Sender: FDA-Public Use
  Company Number: PHHY2012DE083692

PATIENT
  Age: 36 Year
  Sex: Female

DRUGS (2)
  1. EXTAVIA [Suspect]
     Indication: MULTIPLE SCLEROSIS
     Dosage: 0.75 ml, QOD (187.5 mcg/ml, QOD)
     Route: 058
     Dates: start: 20120831, end: 20121001
  2. EXTAVIA [Suspect]
     Dosage: (250 mcg/ml, QOD)1 ml, QOD
     Route: 058
     Dates: start: 20121102, end: 20121112

REACTIONS (4)
  - Abasia [Recovered/Resolved]
  - Muscle spasticity [Not Recovered/Not Resolved]
  - Musculoskeletal stiffness [Recovered/Resolved]
  - Headache [Recovered/Resolved]
